FAERS Safety Report 7317338-0 (Version None)
Quarter: 2011Q1

REPORT INFORMATION
  Report Type: 
  Country: None (occurrence: None)
  Receive Date: 20110226
  Receipt Date: 20101027
  Transmission Date: 20110831
  Serious: No
  Sender: FDA-Public Use
  Company Number: US-ALLERGAN-1013857US

PATIENT

DRUGS (2)
  1. BOTOXA? [Suspect]
     Indication: TORTICOLLIS
     Dosage: UNK
  2. BOTOXA? [Suspect]
     Indication: DYSTONIA

REACTIONS (2)
  - DRUG EFFECT DELAYED [None]
  - ADVERSE DRUG REACTION [None]
